FAERS Safety Report 4685388-9 (Version None)
Quarter: 2005Q2

REPORT INFORMATION
  Report Type: 
  Country: None (occurrence: None)
  Receive Date: 20050608
  Receipt Date: 20041203
  Transmission Date: 20051028
  Serious: Yes (Other)
  Sender: FDA-Public Use
  Company Number: GB-GLAXOSMITHKLINE-B0360912A

PATIENT
  Sex: Female

DRUGS (6)
  1. PAROXETINE HYDROCHLORIDE [Suspect]
     Route: 065
     Dates: start: 19930101
  2. DIAZEPAM [Concomitant]
     Route: 065
  3. CO-PROXAMOL [Concomitant]
     Route: 065
  4. LITHIUM [Concomitant]
     Dosage: 800MG PER DAY
     Route: 065
  5. CONTRACEPTIVE PILL [Concomitant]
     Route: 048
  6. SALBUTAMOL [Concomitant]
     Route: 065

REACTIONS (8)
  - ANXIETY [None]
  - BLOOD PRESSURE ABNORMAL [None]
  - BLOOD PRESSURE DIASTOLIC INCREASED [None]
  - DRUG WITHDRAWAL SYNDROME [None]
  - MUSCULOSKELETAL STIFFNESS [None]
  - NIGHT SWEATS [None]
  - SENSORY DISTURBANCE [None]
  - SUICIDAL IDEATION [None]
